FAERS Safety Report 10095046 (Version 1)
Quarter: 2014Q2

REPORT INFORMATION
  Report Type: Spontaneous
  Country: US (occurrence: US)
  Receive Date: 20140422
  Receipt Date: 20140422
  Transmission Date: 20141212
  Serious: Yes (Hospitalization)
  Sender: FDA-Public Use
  Company Number: US-BAYER-2014-058250

PATIENT
  Age: 23 Year
  Sex: Female
  Weight: 86.17 kg

DRUGS (18)
  1. MIRENA [Suspect]
     Indication: CONTRACEPTION
     Dosage: 24 MCG/24HR, CONT
     Route: 015
     Dates: start: 200706, end: 20090403
  2. REGLAN [Concomitant]
     Dosage: 10 MG, UNK
  3. TORADOL [Concomitant]
     Dosage: 30 MG, UNK
  4. ULTRACET [Concomitant]
     Dosage: QID
  5. PERCOCET [Concomitant]
     Dosage: 1-2 MOUTH TAKE EVERY 4 -6 HRS (HOURS) AS NEEDED
  6. MOTRIN [Concomitant]
     Dosage: 1 TAKE EVERY 8 HRS AS NEEDED
  7. MEPERGAN [Concomitant]
  8. DIFLUCAN [Concomitant]
  9. STADOL [Concomitant]
     Dosage: 1 MG IM RIGHT HIP
  10. TERBUTALINE SULFATE [Concomitant]
     Dosage: 25 MG, UNK
  11. PHENERGAN [Concomitant]
     Dosage: 25 MG, UNK
  12. PROMETHAZINE [Concomitant]
     Dosage: 25 MG, UNK
  13. NALBUPHINE [Concomitant]
     Dosage: 10 MG, UNK
  14. OXYCODONE [Concomitant]
     Dosage: 5/325 1
  15. LORTAB [Concomitant]
     Indication: PAIN
     Dosage: 2.5/500 QID
  16. LORTAB [Concomitant]
     Indication: PAIN
     Dosage: 5 MG, BID AS NEEDED
  17. LEVSIN [Concomitant]
     Dosage: 0.125 MG, UNK
  18. LISINOPRIL [Concomitant]
     Dosage: 20 MG, UNK

REACTIONS (4)
  - Uterine perforation [None]
  - Pregnancy with contraceptive device [None]
  - Drug ineffective [None]
  - Menorrhagia [None]
